FAERS Safety Report 10153125 (Version 2)
Quarter: 2014Q2

REPORT INFORMATION
  Report Type: Report from Study
  Country: JP (occurrence: JP)
  Receive Date: 20140505
  Receipt Date: 20140527
  Transmission Date: 20141212
  Serious: Yes (Hospitalization)
  Sender: FDA-Public Use
  Company Number: JP-UCBSA-119889

PATIENT
  Age: 57 Year
  Sex: Female

DRUGS (2)
  1. E KEPPRA [Suspect]
     Indication: PARTIAL SEIZURES WITH SECONDARY GENERALISATION
     Route: 048
     Dates: start: 20140406, end: 20140409
  2. SODIUM VALPROATE [Concomitant]
     Dosage: DAILY DOSE: 200 MG
     Route: 048

REACTIONS (1)
  - Intestinal obstruction [Recovered/Resolved]
